FAERS Safety Report 15895550 (Version 1)
Quarter: 2019Q1

REPORT INFORMATION
  Report Type: Spontaneous
  Country: GR (occurrence: GR)
  Receive Date: 20190131
  Receipt Date: 20190131
  Transmission Date: 20190417
  Serious: Yes (Hospitalization)
  Sender: FDA-Public Use
  Company Number: GR-PFIZER INC-2019043162

PATIENT
  Age: 76 Year
  Sex: Female
  Weight: 78 kg

DRUGS (7)
  1. LYRICA [Suspect]
     Active Substance: PREGABALIN
     Dosage: (75 MG)1 DF, UNK
     Route: 048
     Dates: start: 20110610, end: 20110614
  2. ACCURETIC [Concomitant]
     Active Substance: HYDROCHLOROTHIAZIDE\QUINAPRIL HYDROCHLORIDE
     Dosage: 1 DF, UNK
     Route: 048
  3. LYRICA [Suspect]
     Active Substance: PREGABALIN
     Dosage: (150 MG), 1 DF UNK
     Route: 048
     Dates: start: 20110714, end: 201108
  4. CARVEPEN [Concomitant]
     Active Substance: CARVEDILOL
     Dosage: 1 DF, UNK
     Route: 048
  5. CARVEPEN [Concomitant]
     Active Substance: CARVEDILOL
     Dosage: 12.5 MG, UNK
     Route: 048
  6. LIPIDIL [Concomitant]
     Active Substance: FENOFIBRATE
     Dosage: 1 DF, UNK
     Route: 048
  7. PLAVIX [Concomitant]
     Active Substance: CLOPIDOGREL BISULFATE
     Dosage: 1 DF, UNK
     Route: 048

REACTIONS (1)
  - Neutropenia [Recovered/Resolved]

NARRATIVE: CASE EVENT DATE: 20110623
